FAERS Safety Report 25834274 (Version 5)
Quarter: 2025Q4

REPORT INFORMATION
  Report Type: Spontaneous
  Country: JP (occurrence: JP)
  Receive Date: 20250923
  Receipt Date: 20251202
  Transmission Date: 20260117
  Serious: Yes (Death, Hospitalization)
  Sender: BEIGENE
  Company Number: JP-BEIGENE-BGN-2025-016128

PATIENT
  Age: 75 Year
  Sex: Male
  Weight: 52.5 kg

DRUGS (17)
  1. TEVIMBRA [Suspect]
     Active Substance: TISLELIZUMAB-JSGR
     Indication: Oesophageal carcinoma
     Dosage: 200 MILLIGRAM
     Dates: start: 20250912, end: 20250927
  2. TEVIMBRA [Suspect]
     Active Substance: TISLELIZUMAB-JSGR
     Dosage: 200 MILLIGRAM
     Route: 041
     Dates: start: 20250912, end: 20250927
  3. TEVIMBRA [Suspect]
     Active Substance: TISLELIZUMAB-JSGR
     Dosage: 200 MILLIGRAM
     Route: 041
     Dates: start: 20250912, end: 20250927
  4. TEVIMBRA [Suspect]
     Active Substance: TISLELIZUMAB-JSGR
     Dosage: 200 MILLIGRAM
     Dates: start: 20250912, end: 20250927
  5. CISPLATIN [Suspect]
     Active Substance: CISPLATIN
     Indication: Oesophageal carcinoma
     Dosage: 110 MILLIGRAM
     Route: 041
     Dates: start: 20250912, end: 20250912
  6. CISPLATIN [Suspect]
     Active Substance: CISPLATIN
     Dosage: 110 MILLIGRAM
     Dates: start: 20250912, end: 20250912
  7. FLUOROURACIL [Suspect]
     Active Substance: FLUOROURACIL
     Indication: Oesophageal carcinoma
     Dosage: 1100 MILLIGRAM
     Route: 041
     Dates: start: 20250912, end: 20250915
  8. FLUOROURACIL [Suspect]
     Active Substance: FLUOROURACIL
     Dosage: 1100 MILLIGRAM
     Dates: start: 20250912, end: 20250915
  9. OMEPRAZOLE [Concomitant]
     Active Substance: OMEPRAZOLE
  10. AMINO ACIDS\DEXTROSE\ELECTROLYTES NOS\MINERALS\VITAMINS [Concomitant]
     Active Substance: AMINO ACIDS\DEXTROSE\ELECTROLYTES NOS\MINERALS\VITAMINS
  11. Otsuka sodium chloride [Concomitant]
  12. FOSNETUPITANT CHLORIDE HYDROCHLORIDE [Concomitant]
     Active Substance: FOSNETUPITANT CHLORIDE HYDROCHLORIDE
     Route: 041
  13. FOSNETUPITANT CHLORIDE HYDROCHLORIDE [Concomitant]
     Active Substance: FOSNETUPITANT CHLORIDE HYDROCHLORIDE
  14. PALONOSETRON [Concomitant]
     Active Substance: PALONOSETRON
     Route: 041
  15. PALONOSETRON [Concomitant]
     Active Substance: PALONOSETRON
  16. DEXAMETHASONE SODIUM PHOSPHATE [Concomitant]
     Active Substance: DEXAMETHASONE SODIUM PHOSPHATE
  17. MANNITOL\SORBITOL [Concomitant]
     Active Substance: MANNITOL\SORBITOL

REACTIONS (5)
  - Oesophageal perforation [Fatal]
  - Tumour rupture [Fatal]
  - Sepsis [Fatal]
  - Tumour perforation [Fatal]
  - Mediastinitis [Fatal]

NARRATIVE: CASE EVENT DATE: 20250916
